FAERS Safety Report 7170932-2 (Version None)
Quarter: 2010Q4

REPORT INFORMATION
  Report Type: 
  Country: None (occurrence: None)
  Receive Date: 20101217
  Receipt Date: 20101206
  Transmission Date: 20110411
  Serious: Yes (Hospitalization)
  Sender: FDA-Public Use
  Company Number: US-CELGENEUS-163-21880-10121071

PATIENT
  Sex: Female

DRUGS (4)
  1. REVLIMID [Suspect]
     Indication: MULTIPLE MYELOMA
     Route: 048
     Dates: start: 20090101
  2. REVLIMID [Suspect]
     Route: 048
     Dates: start: 20091001, end: 20100101
  3. REVLIMID [Suspect]
     Route: 048
     Dates: start: 20100801
  4. REVLIMID [Suspect]
     Route: 048
     Dates: start: 20101201

REACTIONS (2)
  - ABDOMINAL DISCOMFORT [None]
  - SURGERY [None]
